FAERS Safety Report 15939388 (Version 1)
Quarter: 2019Q1

REPORT INFORMATION
  Report Type: Spontaneous
  Country: FR (occurrence: FR)
  Receive Date: 20190208
  Receipt Date: 20190208
  Transmission Date: 20190417
  Serious: Yes (Hospitalization)
  Sender: FDA-Public Use
  Company Number: FR-JNJFOC-20190205881

PATIENT
  Age: 32 Year
  Sex: Female

DRUGS (3)
  1. TEMESTA [LORAZEPAM] [Concomitant]
     Active Substance: LORAZEPAM
     Route: 048
  2. EPITOMAX [Suspect]
     Active Substance: TOPIRAMATE
     Indication: EPILEPSY
     Route: 048
     Dates: start: 20181109, end: 20181218
  3. LAMICTAL [Suspect]
     Active Substance: LAMOTRIGINE
     Indication: EPILEPSY
     Route: 048
     Dates: start: 20181109, end: 20181206

REACTIONS (4)
  - Erotomanic delusion [Recovered/Resolved]
  - Anxiety [Recovered/Resolved]
  - Insomnia [Recovered/Resolved]
  - Delusion of grandeur [Recovered/Resolved]

NARRATIVE: CASE EVENT DATE: 20181130
